FAERS Safety Report 7530654-2 (Version None)
Quarter: 2011Q2

REPORT INFORMATION
  Report Type: 
  Country: None (occurrence: None)
  Receive Date: 20110607
  Receipt Date: 20110530
  Transmission Date: 20111010
  Serious: Yes (Hospitalization, Disabling)
  Sender: FDA-Public Use
  Company Number: JP-B.I. PHARMACEUTICALS,INC./RIDGEFIELD-2011-BP-10389NB

PATIENT
  Sex: Female

DRUGS (10)
  1. AMLODIPINE [Concomitant]
     Indication: HYPERTENSION
     Dosage: 5 MG
  2. PRADAXA [Suspect]
     Indication: CEREBROVASCULAR ACCIDENT PROPHYLAXIS
     Dosage: 220 MG
     Dates: start: 20110404, end: 20110408
  3. MUCOSTA [Concomitant]
     Indication: GASTRITIS
     Dosage: 200 MG
  4. FRANDOL S [Concomitant]
     Indication: ANGINA PECTORIS
     Dosage: 40 MG
     Route: 065
  5. LANIRAPID [Concomitant]
     Indication: ATRIAL FIBRILLATION
     Dosage: 0.1 MG
     Route: 065
  6. DISOPYRAMIDE PHOSPHATE [Concomitant]
     Indication: ATRIAL FIBRILLATION
     Dosage: 300 MG
     Route: 048
  7. NATRIX [Concomitant]
     Indication: HYPERTENSION
     Dosage: 1 MG
  8. DOXAZOSIN MESYLATE [Concomitant]
     Indication: HYPERTENSION
     Dosage: 1 MG
  9. THYRADIN [Concomitant]
     Indication: HYPOTHYROIDISM
     Dosage: 25 MCG
  10. CARVEDILOL [Concomitant]
     Indication: ATRIAL FIBRILLATION
     Dosage: 5 MG
     Route: 048

REACTIONS (2)
  - DRUG INEFFECTIVE [None]
  - EMBOLIC STROKE [None]
